FAERS Safety Report 15778419 (Version 1)
Quarter: 2018Q4

REPORT INFORMATION
  Report Type: Spontaneous
  Country: US (occurrence: US)
  Receive Date: 20181231
  Receipt Date: 20181231
  Transmission Date: 20190205
  Serious: No
  Sender: FDA-Public Use
  Company Number: PHEH2018US055304

PATIENT
  Sex: Male

DRUGS (1)
  1. VOTRIENT [Suspect]
     Active Substance: PAZOPANIB HYDROCHLORIDE
     Indication: PRODUCT USED FOR UNKNOWN INDICATION
     Dosage: TAKE 2 TABS BY MOUTH FOR 7 DAYS , THEN INREASED TO 3 TABS DAILY, TAKE EMPTY STOMACH 1 HR BEFORE
     Route: 048

REACTIONS (1)
  - Fatigue [Not Recovered/Not Resolved]
